FAERS Safety Report 21979510 (Version 1)
Quarter: 2023Q1

REPORT INFORMATION
  Report Type: Spontaneous
  Country: JP (occurrence: None)
  Receive Date: 20230210
  Receipt Date: 20230210
  Transmission Date: 20230418
  Serious: Yes (Other)
  Sender: FDA-Public Use
  Company Number: 2022A346528

PATIENT
  Age: 63 Year
  Sex: Female
  Weight: 51 kg

DRUGS (8)
  1. LYNPARZA [Suspect]
     Active Substance: OLAPARIB
     Indication: Breast cancer recurrent
     Route: 048
     Dates: start: 20210618, end: 20211025
  2. LYNPARZA [Suspect]
     Active Substance: OLAPARIB
     Indication: Breast cancer recurrent
     Route: 048
     Dates: start: 20211224, end: 20220317
  3. LYNPARZA [Suspect]
     Active Substance: OLAPARIB
     Indication: Breast cancer recurrent
     Route: 048
     Dates: start: 20220401, end: 20220505
  4. LYNPARZA [Suspect]
     Active Substance: OLAPARIB
     Indication: Breast cancer recurrent
     Route: 048
     Dates: start: 20221020, end: 20221214
  5. TOFISOPAM [Concomitant]
     Active Substance: TOFISOPAM
     Route: 048
     Dates: start: 2007
  6. CALCIUM CARBONATE\CHOLECALCIFEROL\MAGNESIUM CARBONATE [Concomitant]
     Active Substance: CALCIUM CARBONATE\CHOLECALCIFEROL\MAGNESIUM CARBONATE
     Route: 048
     Dates: start: 20210608
  7. LANSOPRAZOLE [Concomitant]
     Active Substance: LANSOPRAZOLE
     Route: 048
     Dates: start: 20220617
  8. URSODIOL [Concomitant]
     Active Substance: URSODIOL
     Route: 048
     Dates: start: 20220812

REACTIONS (7)
  - Cholangitis [Recovering/Resolving]
  - Anaemia [Recovered/Resolved]
  - Bile duct stenosis [Unknown]
  - White blood cell count decreased [Unknown]
  - Neutrophil count decreased [Unknown]
  - Headache [Unknown]
  - Dizziness [Unknown]

NARRATIVE: CASE EVENT DATE: 20220101
